FAERS Safety Report 9641907 (Version 2)
Quarter: 2014Q3

REPORT INFORMATION
  Report Type: Spontaneous
  Country: US (occurrence: US)
  Receive Date: 20131023
  Receipt Date: 20140819
  Transmission Date: 20150326
  Serious: Yes (Hospitalization, Other)
  Sender: FDA-Public Use
  Company Number: US-009507513-1310USA010583

PATIENT
  Sex: Female
  Weight: 82.86 kg

DRUGS (2)
  1. NUVARING [Suspect]
     Active Substance: ETHINYL ESTRADIOL\ETONOGESTREL
     Indication: BLOOD PRESSURE FLUCTUATION
     Dosage: UNK
     Route: 067
     Dates: start: 20060725
  2. NUVARING [Suspect]
     Active Substance: ETHINYL ESTRADIOL\ETONOGESTREL
     Indication: CONTRACEPTION

REACTIONS (6)
  - Pulmonary embolism [Unknown]
  - Off label use [Unknown]
  - Anxiety [Unknown]
  - Depression [Unknown]
  - Loss of consciousness [Recovered/Resolved]
  - Cardiomyopathy [Unknown]

NARRATIVE: CASE EVENT DATE: 20060725
